FAERS Safety Report 6370871-0 (Version None)
Quarter: 2009Q3

REPORT INFORMATION
  Report Type: 
  Country: None (occurrence: None)
  Receive Date: 20090923
  Receipt Date: 20070514
  Transmission Date: 20100115
  Serious: Yes (Other)
  Sender: FDA-Public Use
  Company Number: US-ASTRAZENECA-2006UW23516

PATIENT
  Age: 18470 Day
  Sex: Female
  Weight: 83 kg

DRUGS (11)
  1. SEROQUEL [Suspect]
     Indication: BIPOLAR DISORDER
     Dosage: 25 MG TO 200 MG
     Route: 048
     Dates: start: 20030416
  2. SEROQUEL [Suspect]
     Indication: DEPRESSION
     Dosage: 25 MG TO 200 MG
     Route: 048
     Dates: start: 20030416
  3. ZYPREXA [Suspect]
  4. PREMARIN [Concomitant]
     Route: 048
     Dates: start: 20020205
  5. SYNTHROID [Concomitant]
     Route: 048
     Dates: start: 20020205
  6. MOTRIN [Concomitant]
     Route: 048
     Dates: start: 20020205
  7. LORAZEPAM [Concomitant]
     Route: 048
     Dates: start: 20020205
  8. CIMETIDINE [Concomitant]
     Route: 048
     Dates: start: 20020205
  9. BENADRYL [Concomitant]
     Route: 048
     Dates: start: 20020205
  10. DEPAKOTE [Concomitant]
     Route: 048
     Dates: start: 20020205
  11. COLACE [Concomitant]
     Route: 048
     Dates: start: 20020205

REACTIONS (4)
  - DIABETES MELLITUS [None]
  - DIABETIC COMA [None]
  - DIABETIC KETOACIDOSIS [None]
  - TYPE 2 DIABETES MELLITUS [None]
